FAERS Safety Report 4349129-7 (Version None)
Quarter: 2004Q2

REPORT INFORMATION
  Report Type: 
  Country: None (occurrence: None)
  Receive Date: 20040426
  Receipt Date: 20040426
  Transmission Date: 20050107
  Serious: Yes (Other)
  Sender: FDA-Public Use
  Company Number: None

PATIENT
  Sex: Female

DRUGS (1)
  1. PALONOSETRON 0.25 MG [Suspect]
     Indication: PROPHYLAXIS
     Dosage: 0.25 MG ONCE INTRAVENOUS
     Route: 042
     Dates: start: 20040317, end: 20040317

REACTIONS (1)
  - MIGRAINE [None]
